FAERS Safety Report 16789851 (Version 2)
Quarter: 2019Q3

REPORT INFORMATION
  Report Type: Spontaneous
  Country: NL (occurrence: NL)
  Receive Date: 20190910
  Receipt Date: 20190923
  Transmission Date: 20191005
  Serious: Yes (Hospitalization, Other)
  Sender: FDA-Public Use
  Company Number: NL-JNJFOC-20190839151

PATIENT
  Sex: Female

DRUGS (2)
  1. ERDAFITINIB. [Suspect]
     Active Substance: ERDAFITINIB
     Indication: BLADDER CANCER
     Route: 048
  2. ERDAFITINIB. [Suspect]
     Active Substance: ERDAFITINIB
     Route: 048

REACTIONS (5)
  - Hyperphosphataemia [Unknown]
  - Mucosal inflammation [Recovering/Resolving]
  - Ileus [Recovering/Resolving]
  - Disease progression [Not Recovered/Not Resolved]
  - Vomiting [Unknown]
